FAERS Safety Report 13544698 (Version 1)
Quarter: 2017Q2

REPORT INFORMATION
  Report Type: Spontaneous
  Country: US (occurrence: US)
  Receive Date: 20170513
  Receipt Date: 20170513
  Transmission Date: 20170830
  Serious: No
  Sender: FDA-Public Use
  Company Number: None

PATIENT
  Age: 69 Year
  Sex: Male

DRUGS (1)
  1. TASIGNA [Suspect]
     Active Substance: NILOTINIB

REACTIONS (6)
  - Head titubation [None]
  - Mood swings [None]
  - Tremor [None]
  - Drug interaction [None]
  - Hunger [None]
  - Nervousness [None]

NARRATIVE: CASE EVENT DATE: 20170513
